FAERS Safety Report 20125820 (Version 1)
Quarter: 2021Q4

REPORT INFORMATION
  Report Type: Spontaneous
  Country: CA (occurrence: CA)
  Receive Date: 20211129
  Receipt Date: 20211129
  Transmission Date: 20220303
  Serious: Yes (Death, Other)
  Sender: FDA-Public Use
  Company Number: CA-SA-SAC20210706001429

PATIENT
  Age: 33 Year
  Sex: Female

DRUGS (20)
  1. TAXOTERE [Suspect]
     Active Substance: DOCETAXEL
     Indication: Invasive ductal breast carcinoma
     Dosage: UNK
     Route: 042
  2. ADRIAMYCIN [Suspect]
     Active Substance: DOXORUBICIN HYDROCHLORIDE
     Indication: Invasive ductal breast carcinoma
     Dosage: 35.0MG/M2
  3. CISPLATIN [Suspect]
     Active Substance: CISPLATIN
     Indication: Choriocarcinoma
     Dosage: UNK
  4. CYCLOPHOSPHAMIDE [Suspect]
     Active Substance: CYCLOPHOSPHAMIDE
     Indication: Choriocarcinoma
  5. DOXORUBICIN [Suspect]
     Active Substance: DOXORUBICIN
     Indication: Invasive ductal breast carcinoma
  6. DOXORUBICIN [Suspect]
     Active Substance: DOXORUBICIN
     Indication: Choriocarcinoma
  7. ETOPOSIDE [Suspect]
     Active Substance: ETOPOSIDE
     Indication: Metastatic neoplasm
  8. ETOPOSIDE [Suspect]
     Active Substance: ETOPOSIDE
     Indication: Choriocarcinoma
  9. GEMCITABINE HYDROCHLORIDE [Suspect]
     Active Substance: GEMCITABINE HYDROCHLORIDE
     Indication: Choriocarcinoma
  10. TRASTUZUMAB [Suspect]
     Active Substance: TRASTUZUMAB
     Indication: Invasive ductal breast carcinoma
     Dosage: UNK
  11. VINCRISTINE SULFATE [Suspect]
     Active Substance: VINCRISTINE SULFATE
     Indication: Metastatic choriocarcinoma
     Dosage: UNK
  12. METHOTREXATE [Suspect]
     Active Substance: METHOTREXATE
     Indication: Choriocarcinoma
  13. PACLITAXEL [Suspect]
     Active Substance: PACLITAXEL
     Indication: Choriocarcinoma
     Dosage: UNK
     Route: 042
  14. PACLITAXEL [Suspect]
     Active Substance: PACLITAXEL
     Dosage: UNK
     Route: 042
  15. CYCLOPHOSPHAMIDE [Suspect]
     Active Substance: CYCLOPHOSPHAMIDE
     Indication: Metastatic choriocarcinoma
     Dosage: UNK
  16. GEMCITABINE HYDROCHLORIDE [Suspect]
     Active Substance: GEMCITABINE HYDROCHLORIDE
     Indication: Choriocarcinoma
     Dosage: UNK
  17. DOXORUBICIN HYDROCHLORIDE [Suspect]
     Active Substance: DOXORUBICIN HYDROCHLORIDE
     Indication: Choriocarcinoma
     Dosage: 35 MG/M2
  18. TAXOL [Suspect]
     Active Substance: PACLITAXEL
     Indication: Choriocarcinoma
  19. COSMEGEN [Suspect]
     Active Substance: DACTINOMYCIN
     Indication: Choriocarcinoma
     Dosage: UNK
  20. DACTINOMYCIN [Suspect]
     Active Substance: DACTINOMYCIN
     Indication: Choriocarcinoma

REACTIONS (3)
  - Acute myeloid leukaemia [Fatal]
  - Second primary malignancy [Fatal]
  - Product use in unapproved indication [Fatal]
